FAERS Safety Report 17724631 (Version 2)
Quarter: 2022Q3

REPORT INFORMATION
  Report Type: Spontaneous
  Country: NO (occurrence: NO)
  Receive Date: 20200429
  Receipt Date: 20220915
  Transmission Date: 20221027
  Serious: Yes (Life-Threatening, Disabling, Other)
  Sender: FDA-Public Use
  Company Number: None

PATIENT
  Age: 31 Year
  Sex: Female
  Weight: 69 kg

DRUGS (7)
  1. ABILIFY MAINTENA [Suspect]
     Active Substance: ARIPIPRAZOLE
     Indication: Schizoaffective disorder depressive type
     Dosage: PROLONGED RELEASE INJECTION
     Route: 065
     Dates: start: 20150201
  2. FISH OIL [Concomitant]
     Active Substance: FISH OIL
     Indication: Product used for unknown indication
     Dosage: UNK
     Route: 065
  3. VITAMIN D [Concomitant]
     Active Substance: VITAMIN D NOS
     Indication: Product used for unknown indication
     Dosage: UNK
     Route: 065
  4. IRON [Concomitant]
     Active Substance: IRON
     Indication: Product used for unknown indication
     Dosage: UNK
     Route: 065
  5. VITAMIN A [RETINOL PALMITATE] [Concomitant]
     Indication: Product used for unknown indication
     Route: 065
  6. LAMICTAL [Concomitant]
     Active Substance: LAMOTRIGINE
     Indication: Schizoaffective disorder depressive type
     Dosage: USED BETWEEN 50MG AND 200MG
     Route: 065
     Dates: start: 20150201, end: 20171201
  7. LAMICTAL [Concomitant]
     Active Substance: LAMOTRIGINE
     Indication: Mood swings

REACTIONS (18)
  - Paranoia [Recovering/Resolving]
  - Hyperphagia [Recovering/Resolving]
  - Amnesia [Unknown]
  - Cognitive disorder [Recovered/Resolved with Sequelae]
  - Apathy [Recovering/Resolving]
  - Increased appetite [Recovering/Resolving]
  - Muscle twitching [Recovering/Resolving]
  - Impulsive behaviour [Recovering/Resolving]
  - Suicidal ideation [Recovering/Resolving]
  - Weight increased [Recovering/Resolving]
  - Loss of personal independence in daily activities [Unknown]
  - Antisocial behaviour [Unknown]
  - Paranoia [Recovering/Resolving]
  - Paranoia [Unknown]
  - Psychotic disorder [Not Recovered/Not Resolved]
  - Insomnia [Not Recovered/Not Resolved]
  - Somnolence [Unknown]
  - Product use in unapproved indication [Unknown]

NARRATIVE: CASE EVENT DATE: 20150201
